FAERS Safety Report 21964318 (Version 1)
Quarter: 2023Q1

REPORT INFORMATION
  Report Type: Spontaneous
  Country: US (occurrence: US)
  Receive Date: 20230207
  Receipt Date: 20230207
  Transmission Date: 20230417
  Serious: No
  Sender: FDA-Public Use
  Company Number: US-BRISTOL-MYERS SQUIBB COMPANY-2022-032456

PATIENT
  Age: 93 Year
  Sex: Male

DRUGS (1)
  1. REVLIMID [Suspect]
     Active Substance: LENALIDOMIDE
     Indication: Plasma cell myeloma
     Dosage: FREQ: TAKE 1 CAPSULE BY MOUTH WITH WATER EVERY 48 HOURS FOR 3 WEEKS, THEN 1 WEEK OFF. DO NOT BREAK,
     Route: 048
     Dates: start: 20210102

REACTIONS (2)
  - Product distribution issue [Unknown]
  - Product prescribing issue [Unknown]
